FAERS Safety Report 5424755-2 (Version None)
Quarter: 2007Q3

REPORT INFORMATION
  Report Type: 
  Country: None (occurrence: None)
  Receive Date: 20070725
  Receipt Date: 20061214
  Transmission Date: 20080115
  Serious: Yes (Death)
  Sender: FDA-Public Use
  Company Number: USA-2006-0025969

PATIENT
  Age: 21 Year
  Sex: Female
  Weight: 59 kg

DRUGS (2)
  1. MS CONTIN [Suspect]
     Indication: DRUG ABUSER
  2. METHAMPHETAMINE HYDROCHLORIDE [Suspect]
     Indication: DRUG ABUSER

REACTIONS (2)
  - MULTIPLE DRUG OVERDOSE ACCIDENTAL [None]
  - SUBSTANCE ABUSE [None]
